FAERS Safety Report 6453862-0 (Version None)
Quarter: 2009Q4

REPORT INFORMATION
  Report Type: 
  Country: None (occurrence: None)
  Receive Date: 20091116
  Receipt Date: 20091102
  Transmission Date: 20100525
  Serious: Yes (Hospitalization)
  Sender: FDA-Public Use
  Company Number: 8050677

PATIENT
  Age: 69 Year
  Sex: Female

DRUGS (10)
  1. CDP870    (CIMZIA) [Suspect]
     Indication: CROHN'S DISEASE
     Dosage: SC
     Route: 058
  2. PREDNISOLONE [Concomitant]
  3. ALENDRONATE [Concomitant]
  4. FERROUS SULFATE TAB [Concomitant]
  5. CALCIUM [Concomitant]
  6. DOXAZOSIN [Concomitant]
  7. DICLOFENAC [Concomitant]
  8. AMLODIPINE [Concomitant]
  9. OXYCONTIN [Concomitant]
  10. OXYNORM [Concomitant]

REACTIONS (3)
  - ALPHA HAEMOLYTIC STREPTOCOCCAL INFECTION [None]
  - DEVICE RELATED INFECTION [None]
  - STAPHYLOCOCCAL INFECTION [None]
